FAERS Safety Report 14840619 (Version 1)
Quarter: 2018Q2

REPORT INFORMATION
  Report Type: Spontaneous
  Country: FR (occurrence: FR)
  Receive Date: 20180503
  Receipt Date: 20180503
  Transmission Date: 20180711
  Serious: Yes (Other)
  Sender: FDA-Public Use
  Company Number: FR-TEVA-2018-FR-887551

PATIENT
  Age: 90 Year
  Sex: Female

DRUGS (1)
  1. VENLAFAXINE [Suspect]
     Active Substance: VENLAFAXINE HYDROCHLORIDE
     Route: 065

REACTIONS (5)
  - Faeces discoloured [Unknown]
  - Malaise [Unknown]
  - Pruritus [Unknown]
  - Nervous system disorder [Unknown]
  - Haematochezia [Unknown]
